FAERS Safety Report 9847651 (Version 1)
Quarter: 2014Q1

REPORT INFORMATION
  Report Type: Report from Study
  Country: US (occurrence: US)
  Receive Date: 20140128
  Receipt Date: 20140128
  Transmission Date: 20141002
  Serious: Yes (Other)
  Sender: FDA-Public Use
  Company Number: US-ROCHE-1334438

PATIENT
  Age: 66 Year
  Sex: Female

DRUGS (4)
  1. AVASTIN [Suspect]
     Indication: RETINAL HAEMORRHAGE
     Route: 050
     Dates: start: 2007, end: 201310
  2. LUCENTIS [Suspect]
     Indication: RETINAL HAEMORRHAGE
     Route: 050
     Dates: start: 201310
  3. UNIRETIC [Concomitant]
     Indication: BLOOD PRESSURE
  4. ASPIRIN [Concomitant]

REACTIONS (6)
  - Blindness [Unknown]
  - Photophobia [Unknown]
  - Visual acuity reduced [Unknown]
  - Macular degeneration [Unknown]
  - Drug ineffective [Unknown]
  - Off label use [Unknown]
